FAERS Safety Report 5857478-6 (Version None)
Quarter: 2008Q3

REPORT INFORMATION
  Report Type: 
  Country: None (occurrence: None)
  Receive Date: 20080826
  Receipt Date: 20080819
  Transmission Date: 20090109
  Serious: Yes (Hospitalization)
  Sender: FDA-Public Use
  Company Number: FR-BAYER-FR-2007-038484

PATIENT
  Age: 43 Year
  Sex: Female

DRUGS (2)
  1. ANDROCUR [Suspect]
     Indication: HYPERANDROGENISM
     Route: 048
     Dates: start: 20060201, end: 20070531
  2. DROSPIRENONE AND ETHINYL ESTRADIOL [Suspect]
     Indication: ORAL CONTRACEPTION
     Route: 048
     Dates: end: 20070531

REACTIONS (3)
  - C-REACTIVE PROTEIN INCREASED [None]
  - NEUTROPHILIA [None]
  - PYREXIA [None]
